FAERS Safety Report 13457060 (Version 6)
Quarter: 2021Q1

REPORT INFORMATION
  Report Type: Spontaneous
  Country: BR (occurrence: BR)
  Receive Date: 20170419
  Receipt Date: 20210210
  Transmission Date: 20210419
  Serious: Yes (Hospitalization, Other)
  Sender: FDA-Public Use
  Company Number: BR-BIOMARINAP-BR-2017-113642

PATIENT
  Age: 9 Year
  Sex: Male
  Weight: 31 kg

DRUGS (1)
  1. VIMIZIM [Suspect]
     Active Substance: ELOSULFASE ALFA
     Indication: MUCOPOLYSACCHARIDOSIS IV
     Dosage: UNK UNK, QW
     Route: 042
     Dates: start: 20161104

REACTIONS (12)
  - Arthralgia [Not Recovered/Not Resolved]
  - Pain in extremity [Not Recovered/Not Resolved]
  - Dyspnoea [Unknown]
  - Pectus carinatum [Unknown]
  - Muscular weakness [Recovering/Resolving]
  - Sinusitis [Unknown]
  - Fatigue [Recovering/Resolving]
  - Limb deformity [Recovered/Resolved]
  - Gait inability [Unknown]
  - Weight increased [Unknown]
  - Gait disturbance [Unknown]
  - Deformity [Recovered/Resolved]
